FAERS Safety Report 7305422-7 (Version None)
Quarter: 2011Q1

REPORT INFORMATION
  Report Type: 
  Country: None (occurrence: None)
  Receive Date: 20110222
  Receipt Date: 20110217
  Transmission Date: 20110831
  Serious: Yes (Other)
  Sender: FDA-Public Use
  Company Number: US-PFIZER INC-2011035937

PATIENT
  Sex: Female

DRUGS (5)
  1. NARDIL [Suspect]
     Indication: DEPRESSION
     Dosage: 60 MG, UNK
     Route: 048
     Dates: start: 19940101
  2. NARDIL [Suspect]
     Indication: ANXIETY
     Dosage: 45 MG, UNK
     Route: 048
  3. KLONOPIN [Concomitant]
     Dosage: 0.5 MG, 2X/DAY
  4. NEURONTIN [Concomitant]
     Dosage: UNK, 2X/DAY
  5. SYNTHROID [Concomitant]
     Dosage: UNK

REACTIONS (4)
  - INTERVERTEBRAL DISC PROTRUSION [None]
  - PAIN [None]
  - AUTOIMMUNE DISORDER [None]
  - NERVOUS SYSTEM DISORDER [None]
